FAERS Safety Report 25805667 (Version 1)
Quarter: 2025Q3

REPORT INFORMATION
  Report Type: Spontaneous
  Country: GB (occurrence: GB)
  Receive Date: 20250916
  Receipt Date: 20250916
  Transmission Date: 20251021
  Serious: Yes (Hospitalization)
  Sender: MERZ
  Company Number: GB-MERZ PHARMACEUTICALS LLC-ACO_178981_2025

PATIENT

DRUGS (1)
  1. DALFAMPRIDINE [Suspect]
     Active Substance: DALFAMPRIDINE
     Indication: Multiple sclerosis
     Dosage: 10 MILLIGRAM, BID
     Route: 048
     Dates: end: 202508

REACTIONS (2)
  - Gait inability [Unknown]
  - Urinary tract infection [Unknown]
